FAERS Safety Report 10041265 (Version 2)
Quarter: 2014Q1

REPORT INFORMATION
  Report Type: Report from Study
  Country: US (occurrence: US)
  Receive Date: 20140327
  Receipt Date: 20140327
  Transmission Date: 20141002
  Serious: Yes (Hospitalization, Congenital Anomaly, Other)
  Sender: FDA-Public Use
  Company Number: US-ROCHE-1137821

PATIENT
  Age: 0 Day
  Sex: Female

DRUGS (29)
  1. OMALIZUMAB [Suspect]
     Indication: PRODUCT USED FOR UNKNOWN INDICATION
     Route: 064
     Dates: start: 20120213
  2. OMALIZUMAB [Suspect]
     Route: 063
     Dates: start: 20120227
  3. OMALIZUMAB [Suspect]
     Route: 064
     Dates: start: 20120315
  4. OMALIZUMAB [Suspect]
     Route: 064
     Dates: start: 20120329
  5. OMALIZUMAB [Suspect]
     Route: 064
     Dates: start: 20120413
  6. OMALIZUMAB [Suspect]
     Route: 064
     Dates: start: 20120430
  7. OMALIZUMAB [Suspect]
     Route: 064
     Dates: start: 20120510
  8. OMALIZUMAB [Suspect]
     Route: 064
     Dates: start: 20120525
  9. OMALIZUMAB [Suspect]
     Route: 064
     Dates: start: 20120607
  10. OMALIZUMAB [Suspect]
     Route: 064
     Dates: start: 20120622
  11. OMALIZUMAB [Suspect]
     Route: 064
     Dates: start: 20120705
  12. OMALIZUMAB [Suspect]
     Route: 064
     Dates: start: 20120808
  13. OMALIZUMAB [Suspect]
     Route: 064
     Dates: start: 20120822
  14. ADVAIR [Concomitant]
     Route: 064
  15. ZYRTEC [Concomitant]
     Route: 064
  16. PROTONIX (UNITED STATES) [Concomitant]
     Route: 064
  17. SINGULAIR [Concomitant]
     Route: 064
  18. AUGMENTIN [Concomitant]
     Route: 064
  19. VENTOLIN [Concomitant]
     Route: 064
  20. ALBUTEROL [Concomitant]
     Route: 064
  21. DIFLORASONE [Concomitant]
     Route: 064
  22. BETAMETHASONE [Concomitant]
     Route: 064
     Dates: start: 20120907, end: 20120908
  23. AMPICILLINE [Concomitant]
     Route: 064
     Dates: start: 20120908, end: 20120911
  24. AMOXICILLINE [Concomitant]
     Route: 064
     Dates: start: 20120911, end: 20120912
  25. NORCO [Concomitant]
     Route: 064
     Dates: start: 20120912, end: 20120912
  26. MOTRIN [Concomitant]
     Route: 064
     Dates: start: 20120912, end: 20120912
  27. SYNAGIS [Concomitant]
  28. ALLEGRA [Concomitant]
     Indication: HYPERSENSITIVITY
     Route: 064
  29. ZOLOFT [Concomitant]
     Indication: DEPRESSION

REACTIONS (9)
  - Umbilical hernia [Recovered/Resolved]
  - Foetal heart rate deceleration abnormality [Unknown]
  - Premature baby [Unknown]
  - Eczema [Unknown]
  - Salivary hypersecretion [Unknown]
  - Bronchiolitis [Recovered/Resolved]
  - Wheezing [Recovered/Resolved]
  - Gastrooesophageal reflux disease [Unknown]
  - Maternal exposure timing unspecified [Unknown]
